FAERS Safety Report 7458820-5 (Version None)
Quarter: 2011Q2

REPORT INFORMATION
  Report Type: 
  Country: None (occurrence: None)
  Receive Date: 20110504
  Receipt Date: 20110425
  Transmission Date: 20111010
  Serious: Yes (Hospitalization, Other)
  Sender: FDA-Public Use
  Company Number: US-ASTRAZENECA-2010SE33992

PATIENT
  Sex: Female

DRUGS (9)
  1. LEVETIRACETAM [Concomitant]
  2. NEXIUM [Suspect]
     Route: 048
  3. GLIPIZIDE [Concomitant]
  4. SIMVASTATIN [Concomitant]
  5. LEVOTHYROXINE SODIUM [Concomitant]
  6. NITROGLYCERIN [Concomitant]
  7. PLAVIX [Concomitant]
  8. ATENOLOL [Concomitant]
  9. NEURONTIN [Concomitant]

REACTIONS (8)
  - NERVOUSNESS [None]
  - OROPHARYNGEAL PAIN [None]
  - DRUG DOSE OMISSION [None]
  - CARDIAC PACEMAKER INSERTION [None]
  - INCONTINENCE [None]
  - DYSPHAGIA [None]
  - CANDIDIASIS [None]
  - OESOPHAGEAL CARCINOMA [None]
